FAERS Safety Report 8707268 (Version 2)
Quarter: 2012Q4

REPORT INFORMATION
  Report Type: Report from Study
  Country: CA (occurrence: CA)
  Receive Date: 20120803
  Receipt Date: 20121213
  Transmission Date: 20130627
  Serious: Yes (Hospitalization)
  Sender: FDA-Public Use
  Company Number: CA-ABBOTT-12P-028-0962636-00

PATIENT
  Sex: Male
  Weight: 72.64 kg

DRUGS (2)
  1. HUMIRA 40 MG/0.8 ML PEN [Suspect]
     Indication: CROHN^S DISEASE
     Route: 058
     Dates: start: 20100629, end: 2012
  2. HUMIRA 40 MG/0.8 ML PEN [Suspect]
     Dosage: Loading dose
     Route: 058
     Dates: start: 20121204

REACTIONS (4)
  - Pyrexia [Recovered/Resolved]
  - Urinary tract infection [Recovered/Resolved]
  - Splenomegaly [Recovered/Resolved]
  - Prostatomegaly [Not Recovered/Not Resolved]
